FAERS Safety Report 7544511-9 (Version None)
Quarter: 2011Q2

REPORT INFORMATION
  Report Type: 
  Country: None (occurrence: None)
  Receive Date: 20110613
  Receipt Date: 20110607
  Transmission Date: 20111010
  Serious: Yes (Hospitalization, Disabling)
  Sender: FDA-Public Use
  Company Number: US-MERCK-1011USA00404

PATIENT
  Age: 65 Year
  Sex: Female
  Weight: 67 kg

DRUGS (8)
  1. VAGIFEM [Concomitant]
     Route: 065
  2. VITAMINS (UNSPECIFIED) [Concomitant]
     Route: 065
  3. ALDACTAZIDE [Concomitant]
     Route: 065
  4. FOSAMAX [Suspect]
     Route: 048
     Dates: start: 20080901, end: 20091107
  5. BONIVA [Suspect]
     Indication: OSTEOPENIA
     Route: 048
     Dates: start: 20080601, end: 20080801
  6. CYMBALTA [Concomitant]
     Indication: DEPRESSION
     Route: 065
     Dates: start: 20070101
  7. OMEGA-3 MARINE TRIGLYCERIDES [Concomitant]
     Route: 065
  8. FOSAMAX [Suspect]
     Indication: OSTEOPENIA
     Route: 048
     Dates: start: 20050601, end: 20080601

REACTIONS (12)
  - FEMUR FRACTURE [None]
  - MUSCULAR WEAKNESS [None]
  - IMPAIRED HEALING [None]
  - BONE DENSITY DECREASED [None]
  - FOOT FRACTURE [None]
  - FOOT DEFORMITY [None]
  - PAIN IN EXTREMITY [None]
  - OSTEOMA [None]
  - LIGAMENT DISORDER [None]
  - PIRIFORMIS SYNDROME [None]
  - MUSCULOSKELETAL PAIN [None]
  - GASTROOESOPHAGEAL REFLUX DISEASE [None]
